FAERS Safety Report 7356993-6 (Version None)
Quarter: 2011Q1

REPORT INFORMATION
  Report Type: 
  Country: None (occurrence: None)
  Receive Date: 20110317
  Receipt Date: 20110309
  Transmission Date: 20110831
  Serious: No
  Sender: FDA-Public Use
  Company Number: US-BIOGENIDEC-2011BI009174

PATIENT
  Age: 50 Year
  Sex: Female

DRUGS (1)
  1. AVONEX [Suspect]
     Indication: MULTIPLE SCLEROSIS
     Route: 030
     Dates: start: 20110106

REACTIONS (7)
  - INFLUENZA LIKE ILLNESS [None]
  - INJECTION SITE HAEMATOMA [None]
  - LIP SWELLING [None]
  - GINGIVITIS [None]
  - STOMATITIS [None]
  - MENSTRUAL DISORDER [None]
  - INJECTION SITE PAIN [None]
